FAERS Safety Report 15383682 (Version 1)
Quarter: 2018Q3

REPORT INFORMATION
  Report Type: Spontaneous
  Country: US (occurrence: US)
  Receive Date: 20180913
  Receipt Date: 20180913
  Transmission Date: 20181010
  Serious: No
  Sender: FDA-Public Use
  Company Number: US-009507513-1809USA004999

PATIENT

DRUGS (1)
  1. SINEMET [Suspect]
     Active Substance: CARBIDOPA\LEVODOPA
     Indication: NERVOUS SYSTEM DISORDER
     Route: 048

REACTIONS (2)
  - Drug administered to patient of inappropriate age [Unknown]
  - Product use in unapproved indication [Unknown]
